FAERS Safety Report 7030189-X (Version None)
Quarter: 2010Q4

REPORT INFORMATION
  Report Type: 
  Country: None (occurrence: None)
  Receive Date: 20101006
  Receipt Date: 20100512
  Transmission Date: 20110411
  Serious: Yes (Hospitalization)
  Sender: FDA-Public Use
  Company Number: GB-SANOFI-AVENTIS-2010SA015535

PATIENT
  Age: 41 Year

DRUGS (8)
  1. OXALIPLATIN [Suspect]
     Indication: COLON CANCER
     Route: 041
     Dates: start: 20090706, end: 20090706
  2. OXALIPLATIN [Suspect]
     Route: 041
     Dates: start: 20091123, end: 20091123
  3. CETUXIMAB [Suspect]
     Indication: COLON CANCER
     Route: 041
     Dates: start: 20090706, end: 20090706
  4. CETUXIMAB [Suspect]
     Route: 041
     Dates: start: 20091221, end: 20091221
  5. FLUOROURACIL [Suspect]
     Indication: COLON CANCER
     Route: 042
     Dates: start: 20090706, end: 20090706
  6. FLUOROURACIL [Suspect]
     Route: 042
     Dates: start: 20091216, end: 20091216
  7. FOLINIC ACID [Suspect]
     Indication: COLON CANCER
     Route: 041
     Dates: start: 20090706, end: 20090706
  8. FOLINIC ACID [Suspect]
     Route: 041
     Dates: start: 20091216, end: 20091216

REACTIONS (3)
  - ABDOMINAL PAIN [None]
  - COLON CANCER [None]
  - VOMITING [None]
